FAERS Safety Report 18663602 (Version 2)
Quarter: 2020Q4

REPORT INFORMATION
  Report Type: Report from Study
  Country: US (occurrence: US)
  Receive Date: 20201224
  Receipt Date: 20201224
  Transmission Date: 20210114
  Serious: Yes (Hospitalization, Other)
  Sender: FDA-Public Use
  Company Number: US-JNJFOC-A-US2020-208766

PATIENT
  Age: 59 Year
  Sex: Female
  Weight: 142.56 kg

DRUGS (11)
  1. UPTRAVI [Suspect]
     Active Substance: SELEXIPAG
     Indication: PULMONARY ARTERIAL HYPERTENSION
     Dosage: 1600 MCG, BID.
     Route: 048
     Dates: start: 202007
  2. SILDENAFIL CITRATE. [Concomitant]
     Active Substance: SILDENAFIL CITRATE
     Indication: PULMONARY ARTERIAL HYPERTENSION
     Route: 065
  3. OPSUMIT [Suspect]
     Active Substance: MACITENTAN
     Indication: PULMONARY ARTERIAL HYPERTENSION
     Dosage: 10 MG, QD. IT WAS UNKNOWN THAT APPROXIMATELY HOW MANY DOSES PATIENT HAD RECEIVED.
     Route: 048
     Dates: end: 20200824
  4. LOSARTAN. [Concomitant]
     Active Substance: LOSARTAN
     Indication: HYPERTENSION
  5. UPTRAVI [Suspect]
     Active Substance: SELEXIPAG
     Route: 065
     Dates: start: 20201002
  6. METFORMIN [Concomitant]
     Active Substance: METFORMIN HYDROCHLORIDE
     Indication: DIABETES MELLITUS
  7. ESOMEPRAZOLE. [Concomitant]
     Active Substance: ESOMEPRAZOLE MAGNESIUM
  8. UPTRAVI [Suspect]
     Active Substance: SELEXIPAG
     Dosage: 800 MCG, BID
     Route: 048
     Dates: start: 202007, end: 20200825
  9. UPTRAVI [Suspect]
     Active Substance: SELEXIPAG
     Dosage: IT WAS UNKNOWN THAT APPROXIMATELY HOW MANY DOSES PATIENT HAD RECEIVED.
     Route: 048
     Dates: end: 20200824
  10. LEVOTHYROXINE. [Concomitant]
     Active Substance: LEVOTHYROXINE
     Indication: HYPOTHYROIDISM
  11. XARELTO [Suspect]
     Active Substance: RIVAROXABAN
     Indication: PRODUCT USED FOR UNKNOWN INDICATION
     Route: 048

REACTIONS (26)
  - Pain [Not Recovered/Not Resolved]
  - Cough [Unknown]
  - Gastrointestinal erosion [Unknown]
  - Haemoglobin decreased [Recovered/Resolved]
  - Fall [Recovered/Resolved]
  - Asthenia [Not Recovered/Not Resolved]
  - Joint lock [Not Recovered/Not Resolved]
  - Femur fracture [Recovered/Resolved]
  - Disseminated intravascular coagulation [Unknown]
  - Diabetic neuropathy [Not Recovered/Not Resolved]
  - Urinary incontinence [Not Recovered/Not Resolved]
  - Pain in jaw [Unknown]
  - Internal haemorrhage [Recovered/Resolved]
  - Accident [Recovered/Resolved]
  - Syncope [Recovered/Resolved]
  - Haematemesis [Recovered/Resolved]
  - Myalgia [Unknown]
  - Malaise [Unknown]
  - Diarrhoea [Unknown]
  - Headache [Unknown]
  - Hospitalisation [Unknown]
  - Hypotension [Recovered/Resolved]
  - Hip fracture [Unknown]
  - Walking aid user [Not Recovered/Not Resolved]
  - Rectal haemorrhage [Recovered/Resolved]
  - Insomnia [Not Recovered/Not Resolved]

NARRATIVE: CASE EVENT DATE: 2020
